FAERS Safety Report 23868807 (Version 1)
Quarter: 2024Q2

REPORT INFORMATION
  Report Type: Spontaneous
  Country: AU (occurrence: AU)
  Receive Date: 20240517
  Receipt Date: 20240517
  Transmission Date: 20240716
  Serious: Yes (Hospitalization)
  Sender: FDA-Public Use
  Company Number: AU-TASMAN PHARMA, INC.-2024TSM00188

PATIENT
  Sex: Male

DRUGS (8)
  1. CLOZAPINE [Suspect]
     Active Substance: CLOZAPINE
     Dosage: 25 MG
     Dates: start: 20230728, end: 20230802
  2. CLOZAPINE [Suspect]
     Active Substance: CLOZAPINE
     Dosage: 200 MG
     Dates: start: 20230803, end: 20230816
  3. VERSACLOZ [Suspect]
     Active Substance: CLOZAPINE
     Dosage: 225 MG
     Dates: start: 20230817, end: 20230823
  4. VERSACLOZ [Suspect]
     Active Substance: CLOZAPINE
     Dosage: 250 MG
     Dates: start: 20230824, end: 20230903
  5. VERSACLOZ [Suspect]
     Active Substance: CLOZAPINE
     Dosage: 275 MG
     Dates: start: 20230904, end: 20230913
  6. CLOZAPINE [Suspect]
     Active Substance: CLOZAPINE
     Dosage: 275 MG
     Dates: start: 20230914, end: 20240327
  7. CLOZAPINE [Suspect]
     Active Substance: CLOZAPINE
     Dosage: 200 MG
     Dates: start: 20240328, end: 20240501
  8. CLOZAPINE [Suspect]
     Active Substance: CLOZAPINE
     Dosage: 275 MG
     Dates: start: 20240502

REACTIONS (1)
  - Hospitalisation [Unknown]
